FAERS Safety Report 18657479 (Version 1)
Quarter: 2020Q4

REPORT INFORMATION
  Report Type: Spontaneous
  Country: US (occurrence: US)
  Receive Date: 20201224
  Receipt Date: 20201224
  Transmission Date: 20210114
  Serious: Yes (Hospitalization)
  Sender: FDA-Public Use
  Company Number: US-DENDREON PHARMACEUTICAL LLC-2020DEN000351

PATIENT

DRUGS (2)
  1. PROVENGE [Suspect]
     Active Substance: SIPULEUCEL-T
     Indication: PROSTATE CANCER METASTATIC
     Dosage: DOSE # 1
     Route: 042
     Dates: start: 20201208, end: 20201208
  2. PROVENGE [Suspect]
     Active Substance: SIPULEUCEL-T
     Dosage: DOSE #2
     Dates: start: 20201218, end: 20201218

REACTIONS (1)
  - Vascular device infection [Recovering/Resolving]

NARRATIVE: CASE EVENT DATE: 20201222
